FAERS Safety Report 8444706-6 (Version None)
Quarter: 2012Q2

REPORT INFORMATION
  Report Type: 
  Country: None (occurrence: None)
  Receive Date: 20120618
  Receipt Date: 20120605
  Transmission Date: 20120825
  Serious: Yes (Hospitalization)
  Sender: FDA-Public Use
  Company Number: TW-AMGEN-TWNSP2012033674

PATIENT
  Age: 55 Year
  Sex: Male

DRUGS (7)
  1. CELEBREX [Concomitant]
     Indication: ARTHRITIS
     Dosage: UNK
  2. ENBREL [Suspect]
     Indication: RHEUMATOID ARTHRITIS
     Dosage: 25 MG, 2X/WEEK
     Route: 058
     Dates: start: 19970701
  3. PREDNISOLONE [Concomitant]
     Dosage: UNK
  4. FOLIC ACID [Concomitant]
     Dosage: UNK
  5. GLUCOMET                           /00082702/ [Concomitant]
     Dosage: UNK
  6. FENOFIBRATE [Concomitant]
     Dosage: UNK
  7. METHOTREXATE [Concomitant]
     Dosage: UNK

REACTIONS (2)
  - INGUINAL HERNIA [None]
  - LIPOMA [None]
